FAERS Safety Report 16132595 (Version 1)
Quarter: 2019Q1

REPORT INFORMATION
  Report Type: Other
  Country: CA (occurrence: CA)
  Receive Date: 20190329
  Receipt Date: 20190329
  Transmission Date: 20190418
  Serious: Yes (Hospitalization)
  Sender: FDA-Public Use
  Company Number: CA-APOTEX-2019AP010139

PATIENT
  Age: 69 Year
  Sex: Female

DRUGS (1)
  1. SALBUTAMOL [Suspect]
     Active Substance: ALBUTEROL
     Indication: ASTHMA
     Dosage: 2 DF, Q.12H
     Route: 050

REACTIONS (10)
  - Loss of personal independence in daily activities [Unknown]
  - Wheezing [Unknown]
  - Fatigue [Unknown]
  - Middle insomnia [Unknown]
  - Dyspnoea [Unknown]
  - Rib fracture [Unknown]
  - Hypertension [Unknown]
  - Blood pressure increased [Unknown]
  - Asthma [Unknown]
  - Fall [Unknown]
